FAERS Safety Report 22225976 (Version 3)
Quarter: 2024Q1

REPORT INFORMATION
  Report Type: Spontaneous
  Country: AT (occurrence: AT)
  Receive Date: 20230419
  Receipt Date: 20240109
  Transmission Date: 20240409
  Serious: Yes (Other)
  Sender: FDA-Public Use
  Company Number: AT-BRISTOL-MYERS SQUIBB COMPANY-2023-053539

PATIENT
  Age: 25 Year
  Sex: Female

DRUGS (1)
  1. ZEPOSIA [Suspect]
     Active Substance: OZANIMOD HYDROCHLORIDE
     Indication: Relapsing-remitting multiple sclerosis
     Dosage: DOSE : UNAVAILABLE;     FREQ : UNAVAILABLE
     Dates: end: 2023

REACTIONS (4)
  - Maternal exposure during pregnancy [Recovered/Resolved]
  - Pregnancy on contraceptive [Unknown]
  - Autoimmune thyroiditis [Unknown]
  - Premature delivery [Unknown]

NARRATIVE: CASE EVENT DATE: 20230101
